FAERS Safety Report 6349389-7 (Version None)
Quarter: 2009Q3

REPORT INFORMATION
  Report Type: 
  Country: None (occurrence: None)
  Receive Date: 20090911
  Receipt Date: 20090902
  Transmission Date: 20100115
  Serious: Yes (Other)
  Sender: FDA-Public Use
  Company Number: BR-ABBOTT-09P-020-0595037-00

PATIENT
  Sex: Female

DRUGS (1)
  1. HUMIRA [Suspect]
     Indication: RHEUMATOID ARTHRITIS
     Dates: end: 20090814

REACTIONS (6)
  - FALL [None]
  - PIGMENTATION DISORDER [None]
  - POLYNEUROPATHY [None]
  - RASH MACULAR [None]
  - THYROID DISORDER [None]
  - WEIGHT DECREASED [None]
